FAERS Safety Report 25890581 (Version 1)
Quarter: 2025Q4

REPORT INFORMATION
  Report Type: Spontaneous
  Country: US (occurrence: None)
  Receive Date: 20251006
  Receipt Date: 20251006
  Transmission Date: 20260117
  Serious: Yes (Disabling)
  Sender: FDA-CTU
  Company Number: None

PATIENT
  Age: 74 Year
  Sex: Female

DRUGS (1)
  1. PERMETHRIN [Suspect]
     Active Substance: PERMETHRIN
     Indication: Scabies
     Route: 061
     Dates: start: 20250926, end: 20250927

REACTIONS (6)
  - Visual impairment [None]
  - Application site pain [None]
  - Chemical burn [None]
  - Genital burning sensation [None]
  - Irritability [None]
  - Genital infection female [None]

NARRATIVE: CASE EVENT DATE: 20250926
